FAERS Safety Report 6153329-3 (Version None)
Quarter: 2009Q2

REPORT INFORMATION
  Report Type: 
  Country: None (occurrence: None)
  Receive Date: 20090413
  Receipt Date: 20090407
  Transmission Date: 20091009
  Serious: Yes (Hospitalization, Other)
  Sender: FDA-Public Use
  Company Number: PHHY2009FR13403

PATIENT

DRUGS (6)
  1. TAREG [Suspect]
     Indication: HYPERTENSION
  2. TENSTATEN [Suspect]
     Indication: HYPERTENSION
     Dosage: UNK
     Dates: end: 20090216
  3. MODURETIC 5-50 [Suspect]
     Dosage: UNK
     Dates: end: 20090216
  4. ZALDIAR [Suspect]
     Indication: PAIN
     Dosage: UNK
     Dates: end: 20090216
  5. CALSYN [Concomitant]
  6. LOPERAMIDE HCL [Concomitant]

REACTIONS (4)
  - FALL [None]
  - HIP FRACTURE [None]
  - OEDEMA PERIPHERAL [None]
  - RALES [None]
